FAERS Safety Report 9515884 (Version 1)
Quarter: 2013Q3

REPORT INFORMATION
  Report Type: Spontaneous
  Country: US (occurrence: None)
  Receive Date: 20130909
  Receipt Date: 20130909
  Transmission Date: 20140515
  Serious: Yes (Other)
  Sender: FDA-Public Use
  Company Number: NES-AE-13-008

PATIENT
  Age: 39 Year
  Sex: Male

DRUGS (6)
  1. MORPHINE [Suspect]
     Indication: PAIN
  2. TRAMADOL [Suspect]
     Indication: PAIN
  3. FENTANYL [Suspect]
     Dosage: Q 72HRS.?
  4. HYDROMORPHONE [Suspect]
  5. ALPRRAZOLAM [Suspect]
  6. PARACETAMOL [Suspect]

REACTIONS (3)
  - Dependence [None]
  - Haematoma [None]
  - Adenomatous polyposis coli [None]
